FAERS Safety Report 5928993-1 (Version None)
Quarter: 2008Q4

REPORT INFORMATION
  Report Type: 
  Country: None (occurrence: None)
  Receive Date: 20081024
  Receipt Date: 20081017
  Transmission Date: 20090506
  Serious: Yes (Other)
  Sender: FDA-Public Use
  Company Number: FR-JNJFOC-20081005085

PATIENT
  Age: 66 Year
  Sex: Female

DRUGS (1)
  1. DOXORUBICIN HCL [Suspect]
     Indication: DRUG USE FOR UNKNOWN INDICATION
     Route: 042

REACTIONS (1)
  - SKIN DISORDER [None]
